FAERS Safety Report 8553098-3 (Version None)
Quarter: 2012Q3

REPORT INFORMATION
  Report Type: 
  Country: None (occurrence: None)
  Receive Date: 20120731
  Receipt Date: 20120720
  Transmission Date: 20120928
  Serious: Yes (Other)
  Sender: FDA-Public Use
  Company Number: GB-NOVOPROD-341968

PATIENT
  Age: 27 Year
  Sex: Male
  Weight: 117.5 kg

DRUGS (3)
  1. VICTOZA [Suspect]
     Dosage: 3.0 MG, QD
     Dates: start: 20111229
  2. VICTOZA [Suspect]
     Indication: OBESITY
     Dosage: 0.6 MG, QD
     Route: 058
     Dates: start: 20110818
  3. VICTOZA [Suspect]
     Dosage: 3.0 MG, QD
     Route: 058
     Dates: start: 20110818, end: 20111222

REACTIONS (1)
  - HEPATITIS [None]
